FAERS Safety Report 5704455-1 (Version None)
Quarter: 2008Q2

REPORT INFORMATION
  Report Type: 
  Country: None (occurrence: None)
  Receive Date: 20080411
  Receipt Date: 20080411
  Transmission Date: 20081010
  Serious: Yes (Other)
  Sender: FDA-Public Use
  Company Number: None

PATIENT
  Age: 14 Year
  Sex: Female
  Weight: 34.0198 kg

DRUGS (2)
  1. SINGULAIR [Suspect]
     Indication: ASTHMA
     Dosage: 5 MG  1 TABLET DAILY
     Dates: start: 20070706, end: 20070801
  2. SINGULAIR [Suspect]
     Indication: MULTIPLE ALLERGIES
     Dosage: 5 MG  1 TABLET DAILY
     Dates: start: 20070706, end: 20070801

REACTIONS (2)
  - FEAR [None]
  - HALLUCINATION [None]
